FAERS Safety Report 9915806 (Version 1)
Quarter: 2014Q1

REPORT INFORMATION
  Report Type: Spontaneous
  Country: US (occurrence: None)
  Receive Date: 20140218
  Receipt Date: 20140218
  Transmission Date: 20141002
  Serious: Yes (Hospitalization, Disabling)
  Sender: FDA-Public Use
  Company Number: 2014P1001150

PATIENT
  Age: 10 Year
  Sex: Female
  Weight: 47 kg

DRUGS (3)
  1. MEFLOQUINE [Suspect]
     Indication: MALARIA PROPHYLAXIS
     Route: 048
     Dates: start: 200805
  2. ARTESUNATE [Suspect]
     Indication: MALARIA
     Dates: start: 200805
  3. AMODIAQUINE [Suspect]
     Indication: MALARIA
     Dates: start: 200805

REACTIONS (7)
  - Vision blurred [None]
  - Mydriasis [None]
  - Pupillary reflex impaired [None]
  - Visual acuity reduced [None]
  - Papilloedema [None]
  - Photopsia [None]
  - Drug interaction [None]
